FAERS Safety Report 24558971 (Version 1)
Quarter: 2024Q4

REPORT INFORMATION
  Report Type: Spontaneous
  Country: US (occurrence: US)
  Receive Date: 20241029
  Receipt Date: 20241029
  Transmission Date: 20250115
  Serious: Yes (Other)
  Sender: DR REDDYS
  Company Number: US-DRL-USA-LIT/USA/24/0015753

PATIENT
  Age: 52 Year
  Sex: Male

DRUGS (12)
  1. CETIRIZINE [Suspect]
     Active Substance: CETIRIZINE HYDROCHLORIDE
     Indication: Eosinophilic cellulitis
  2. CYCLOSPORINE [Suspect]
     Active Substance: CYCLOSPORINE
     Indication: Eosinophilic cellulitis
  3. CYCLOSPORINE [Suspect]
     Active Substance: CYCLOSPORINE
  4. FEXOFENADINE [Suspect]
     Active Substance: FEXOFENADINE HYDROCHLORIDE
     Indication: Eosinophilic cellulitis
  5. FAMOTIDINE [Suspect]
     Active Substance: FAMOTIDINE
     Indication: Eosinophilic cellulitis
  6. MONTELUKAST [Suspect]
     Active Substance: MONTELUKAST
     Indication: Eosinophilic cellulitis
  7. DOXYCYCLINE [Suspect]
     Active Substance: DOXYCYCLINE
     Indication: Eosinophilic cellulitis
  8. PREDNISONE [Suspect]
     Active Substance: PREDNISONE
     Indication: Eosinophilic cellulitis
     Dosage: 40-60 MG
  9. MYCOPHENOLATE MOFETIL [Concomitant]
     Active Substance: MYCOPHENOLATE MOFETIL
     Indication: Eosinophilic cellulitis
  10. OMALIZUMAB [Concomitant]
     Active Substance: OMALIZUMAB
     Indication: Eosinophilic cellulitis
  11. CLARITHROMYCIN [Concomitant]
     Active Substance: CLARITHROMYCIN
     Indication: Peptic ulcer
     Dosage: 40-60 MG
  12. AMOXICILLIN [Concomitant]
     Active Substance: AMOXICILLIN
     Indication: Peptic ulcer

REACTIONS (2)
  - Drug ineffective for unapproved indication [Unknown]
  - Treatment noncompliance [Unknown]
